FAERS Safety Report 22677304 (Version 2)
Quarter: 2024Q1

REPORT INFORMATION
  Report Type: Spontaneous
  Country: GB (occurrence: GB)
  Receive Date: 20230706
  Receipt Date: 20240116
  Transmission Date: 20240409
  Serious: Yes (Disabling)
  Sender: FDA-Public Use
  Company Number: GB-MHRA-MED-202306192133388370-BNMJD

PATIENT
  Sex: Female

DRUGS (1)
  1. CITALOPRAM [Suspect]
     Active Substance: CITALOPRAM HYDROBROMIDE
     Indication: Anxiety disorder
     Dosage: 20MGS ONCE A DAY REDUCED TO 10 MGS ONCE A DAY
     Route: 065
     Dates: start: 20111110, end: 201403

REACTIONS (1)
  - Loss of libido [Not Recovered/Not Resolved]

NARRATIVE: CASE EVENT DATE: 20111110
